FAERS Safety Report 14583750 (Version 1)
Quarter: 2018Q1

REPORT INFORMATION
  Report Type: Spontaneous
  Country: GB (occurrence: GB)
  Receive Date: 20180228
  Receipt Date: 20180228
  Transmission Date: 20180509
  Serious: Yes (Other)
  Sender: FDA-Public Use
  Company Number: GB-BAUSCH-BL-2018-005325

PATIENT
  Age: 28 Year
  Sex: Female

DRUGS (4)
  1. METRONIDAZOLE. [Suspect]
     Active Substance: METRONIDAZOLE
     Indication: POSTOPERATIVE WOUND INFECTION
     Route: 048
     Dates: start: 20180130, end: 20180205
  2. CEFRADINE [Suspect]
     Active Substance: CEPHRADINE
     Indication: POSTOPERATIVE WOUND INFECTION
     Route: 048
     Dates: start: 20180130, end: 20180205
  3. AERIUS [Concomitant]
     Active Substance: DESLORATADINE
     Indication: PRODUCT USED FOR UNKNOWN INDICATION
  4. CERAZETTE [Concomitant]
     Active Substance: DESOGESTREL
     Indication: PRODUCT USED FOR UNKNOWN INDICATION

REACTIONS (5)
  - Pruritus [Not Recovered/Not Resolved]
  - Fatigue [Not Recovered/Not Resolved]
  - Back pain [Not Recovered/Not Resolved]
  - Dry eye [Not Recovered/Not Resolved]
  - Abdominal pain [Not Recovered/Not Resolved]

NARRATIVE: CASE EVENT DATE: 20180201
